FAERS Safety Report 9016389 (Version 1)
Quarter: 2013Q1

REPORT INFORMATION
  Report Type: Report from Study
  Country: DE (occurrence: DE)
  Receive Date: 20130116
  Receipt Date: 20130116
  Transmission Date: 20140127
  Serious: Yes (Hospitalization)
  Sender: FDA-Public Use
  Company Number: DE-ROCHE-1178032

PATIENT
  Age: 45 Year
  Sex: Female
  Weight: 69 kg

DRUGS (7)
  1. TRASTUZUMAB [Suspect]
     Indication: BREAST CANCER
     Dosage: DATE OF LAST DOSE PRIOR TO SAE: 28/NOV/2012
     Route: 042
     Dates: start: 20121017
  2. PACLITAXEL [Suspect]
     Indication: BREAST CANCER
     Dosage: DATE OF LAST PRIOR TO SAE : 05/DEC/2012
     Route: 042
     Dates: start: 20121017, end: 20121212
  3. PACLITAXEL [Suspect]
     Route: 042
     Dates: start: 20121228
  4. DOXORUBICIN [Suspect]
     Indication: BREAST CANCER
     Dosage: DATE OF LAST DOSE PRIOR TO SAE: 05/DEC/2012
     Route: 042
     Dates: start: 20121017, end: 20121212
  5. DOXORUBICIN [Suspect]
     Route: 042
     Dates: start: 20121228
  6. LAPATINIB [Suspect]
     Indication: BREAST CANCER
     Route: 065
     Dates: start: 20121017, end: 20121213
  7. LAPATINIB [Suspect]
     Route: 065
     Dates: start: 20121228

REACTIONS (1)
  - Pneumonia [Recovered/Resolved]
